FAERS Safety Report 8483092-2 (Version None)
Quarter: 2012Q2

REPORT INFORMATION
  Report Type: 
  Country: None (occurrence: None)
  Receive Date: 20120625
  Receipt Date: 20120613
  Transmission Date: 20120825
  Serious: Yes (Other)
  Sender: FDA-Public Use
  Company Number: MCA-N-12-067/02

PATIENT
  Age: 12 Year
  Sex: Female

DRUGS (1)
  1. VALPROIC ACID [Suspect]
     Indication: PARTIAL SEIZURES
     Dosage: 30 MG/KG/DAY THREE MONTHS AFTER ONSET OF HALLUCINATIONS: 30 MG/KG/DAY

REACTIONS (9)
  - HALLUCINATION, AUDITORY [None]
  - NEGATIVISM [None]
  - TACHYPHRENIA [None]
  - HALLUCINATION [None]
  - AGITATION [None]
  - HALLUCINATION, VISUAL [None]
  - DRUG WITHDRAWAL SYNDROME [None]
  - PSYCHOTIC DISORDER [None]
  - MENORRHAGIA [None]
